FAERS Safety Report 23778826 (Version 1)
Quarter: 2024Q2

REPORT INFORMATION
  Report Type: Spontaneous
  Country: US (occurrence: US)
  Receive Date: 20240424
  Receipt Date: 20240424
  Transmission Date: 20240716
  Serious: No
  Sender: FDA-Public Use
  Company Number: US-BAYER-2024A061286

PATIENT

DRUGS (2)
  1. CLARITIN [Interacting]
     Active Substance: LORATADINE
     Dosage: UNK
  2. ALCOHOL [Interacting]
     Active Substance: ALCOHOL
     Dosage: UNK

REACTIONS (2)
  - Alcohol interaction [None]
  - Hangover [None]
